FAERS Safety Report 16684019 (Version 1)
Quarter: 2019Q3

REPORT INFORMATION
  Report Type: Spontaneous
  Country: FR (occurrence: FR)
  Receive Date: 20190808
  Receipt Date: 20190808
  Transmission Date: 20191004
  Serious: Yes (Other)
  Sender: FDA-Public Use
  Company Number: FR-JNJFOC-20190805897

PATIENT
  Age: 63 Year
  Sex: Male

DRUGS (4)
  1. ADIAZINE [Suspect]
     Active Substance: SULFADIAZINE
     Indication: CEREBRAL TOXOPLASMOSIS
     Route: 048
     Dates: start: 20190618, end: 20190717
  2. LEVETIRACETAM. [Suspect]
     Active Substance: LEVETIRACETAM
     Indication: CEREBRAL TOXOPLASMOSIS
     Route: 048
     Dates: start: 20190618
  3. PREZISTA [Suspect]
     Active Substance: DARUNAVIR ETHANOLATE
     Indication: HIV TEST POSITIVE
     Route: 048
     Dates: start: 20190628
  4. MALOCIDE (PYRIMETHAMINE) [Suspect]
     Active Substance: PYRIMETHAMINE
     Indication: CEREBRAL TOXOPLASMOSIS
     Route: 048
     Dates: start: 20190614

REACTIONS (1)
  - Neutropenia [Unknown]

NARRATIVE: CASE EVENT DATE: 20190715
